FAERS Safety Report 23978779 (Version 1)
Quarter: 2024Q2

REPORT INFORMATION
  Report Type: Spontaneous
  Country: BE (occurrence: BE)
  Receive Date: 20240615
  Receipt Date: 20240615
  Transmission Date: 20240716
  Serious: Yes (Hospitalization)
  Sender: FDA-Public Use
  Company Number: BE-Accord-429158

PATIENT
  Age: 56 Year
  Sex: Male

DRUGS (7)
  1. ETOPOSIDE [Suspect]
     Active Substance: ETOPOSIDE
     Indication: Haemophagocytic lymphohistiocytosis
     Dosage: 3 DOSES TOTAL
     Dates: start: 202306, end: 202306
  2. DEXAMETHASONE [Concomitant]
     Active Substance: DEXAMETHASONE
     Indication: Haemophagocytic lymphohistiocytosis
     Dates: start: 202306
  3. VANCOMYCIN [Concomitant]
     Active Substance: VANCOMYCIN
     Indication: Antibiotic therapy
     Dates: start: 20230602
  4. MEROPENEM [Concomitant]
     Active Substance: MEROPENEM
     Indication: Antibiotic therapy
     Dates: start: 20230602
  5. VORICONAZOLE [Concomitant]
     Active Substance: VORICONAZOLE
     Indication: Antibiotic therapy
     Dates: start: 20230602
  6. INSULIN NOS [Concomitant]
     Active Substance: INSULIN NOS
     Indication: Insulin resistance
     Dosage: UP TO 800 UNITS PER DAY
     Dates: start: 202305
  7. INSULIN NOS [Concomitant]
     Active Substance: INSULIN NOS
     Indication: Ketoacidosis
     Dosage: UP TO 800 UNITS PER DAY
     Dates: start: 202305

REACTIONS (2)
  - Pancytopenia [Unknown]
  - Off label use [Unknown]

NARRATIVE: CASE EVENT DATE: 20230601
